FAERS Safety Report 5201615-3 (Version None)
Quarter: 2006Q4

REPORT INFORMATION
  Report Type: 
  Country: None (occurrence: None)
  Receive Date: 20061006
  Receipt Date: 20060209
  Transmission Date: 20070319
  Serious: Yes (Other)
  Sender: FDA-Public Use
  Company Number: 200511663BWH

PATIENT
  Age: 74 Year
  Sex: Female
  Weight: 52.1637 kg

DRUGS (1)
  1. CIPRO [Suspect]
     Indication: PNEUMONIA PRIMARY ATYPICAL
     Dosage: 500 MG, BID, ORAL
     Route: 048
     Dates: start: 20020704, end: 20020705

REACTIONS (5)
  - ARTHRALGIA [None]
  - GAIT DISTURBANCE [None]
  - HAEMOGLOBIN DECREASED [None]
  - INSOMNIA [None]
  - PAIN IN EXTREMITY [None]
